FAERS Safety Report 8317912-9 (Version None)
Quarter: 2012Q2

REPORT INFORMATION
  Report Type: 
  Country: None (occurrence: None)
  Receive Date: 20120427
  Receipt Date: 20120423
  Transmission Date: 20120825
  Serious: Yes (Hospitalization)
  Sender: FDA-Public Use
  Company Number: US-AMGEN-USASP2011013639

PATIENT
  Age: 47 Year
  Sex: Female

DRUGS (3)
  1. METHOTREXATE [Concomitant]
     Dosage: UNK
  2. ENBREL [Suspect]
     Indication: RHEUMATOID ARTHRITIS
     Dosage: 50 MG, QWK
     Route: 058
     Dates: start: 20090319
  3. ENBREL [Suspect]
     Dosage: 50 MG, QWK
     Dates: start: 20090521

REACTIONS (3)
  - MOYAMOYA DISEASE [None]
  - INJECTION SITE PAIN [None]
  - HAEMORRHAGE INTRACRANIAL [None]
